FAERS Safety Report 9105744 (Version 2)
Quarter: 2013Q1

REPORT INFORMATION
  Report Type: Spontaneous
  Country: US (occurrence: US)
  Receive Date: 20130220
  Receipt Date: 20130226
  Transmission Date: 20140127
  Serious: Yes (Other)
  Sender: FDA-Public Use
  Company Number: US-PFIZER INC-2013061286

PATIENT
  Sex: Female

DRUGS (6)
  1. CHANTIX [Suspect]
     Indication: SMOKING CESSATION THERAPY
     Dosage: 0.5 MG, 2X/DAY
     Route: 048
     Dates: start: 20130101, end: 20130210
  2. ALLOPURINOL [Concomitant]
     Dosage: 100 MG, UNK
  3. TORSEMIDE [Concomitant]
     Dosage: 10 MG, UNK
  4. VICODIN [Concomitant]
     Indication: BACK PAIN
     Dosage: 100 MG
  5. SODIUM BICARBONATE [Concomitant]
     Dosage: UNK
  6. LOSARTAN [Concomitant]
     Indication: HYPERTENSION
     Dosage: UNK

REACTIONS (1)
  - Local swelling [Not Recovered/Not Resolved]
